FAERS Safety Report 5151488-2 (Version None)
Quarter: 2006Q4

REPORT INFORMATION
  Report Type: 
  Country: None (occurrence: None)
  Receive Date: 20061114
  Receipt Date: 20061114
  Transmission Date: 20070319
  Serious: No
  Sender: FDA-Public Use
  Company Number: None

PATIENT
  Sex: Female
  Weight: 84.8226 kg

DRUGS (2)
  1. ACETAMINOPHEN [Suspect]
     Indication: DYSMENORRHOEA
     Dosage: 1000 MG   PRN  PO
     Route: 048
     Dates: start: 20060901, end: 20061110
  2. ACETAMINOPHEN [Suspect]
     Indication: HEADACHE
     Dosage: 1000 MG   PRN  PO
     Route: 048
     Dates: start: 20060901, end: 20061110

REACTIONS (5)
  - ABDOMINAL PAIN UPPER [None]
  - HEADACHE [None]
  - MIGRAINE [None]
  - PHARMACEUTICAL PRODUCT COMPLAINT [None]
  - POOR QUALITY DRUG ADMINISTERED [None]
